FAERS Safety Report 14558918 (Version 1)
Quarter: 2018Q1

REPORT INFORMATION
  Report Type: Spontaneous
  Country: CA (occurrence: CA)
  Receive Date: 20180221
  Receipt Date: 20180221
  Transmission Date: 20180509
  Serious: Yes (Other)
  Sender: FDA-Public Use
  Company Number: PHHY2018CA026110

PATIENT
  Sex: Male

DRUGS (10)
  1. ATENOLOL. [Concomitant]
     Active Substance: ATENOLOL
     Indication: PRODUCT USED FOR UNKNOWN INDICATION
     Dosage: 12.5 MG, UNK
     Route: 048
  2. AMLODIPINE [Concomitant]
     Active Substance: AMLODIPINE BESYLATE
     Indication: PRODUCT USED FOR UNKNOWN INDICATION
     Dosage: 10 MG, QD
     Route: 048
  3. SOMAVERT [Concomitant]
     Active Substance: PEGVISOMANT
     Indication: ACROMEGALY
     Dosage: 20 MG, QD
     Route: 058
     Dates: start: 201504
  4. DOSTINEX [Concomitant]
     Active Substance: CABERGOLINE
     Indication: ACROMEGALY
     Dosage: 0.5 MG, UNK
     Route: 048
  5. GLICLAZIDE MR STADA [Concomitant]
     Indication: PRODUCT USED FOR UNKNOWN INDICATION
     Dosage: 90 MG, UNK
     Route: 048
  6. ANDROGEL [Concomitant]
     Active Substance: TESTOSTERONE
     Indication: PRODUCT USED FOR UNKNOWN INDICATION
     Dosage: (5 G 1 PERCENT), QD
     Route: 065
  7. LIPITOR [Concomitant]
     Active Substance: ATORVASTATIN CALCIUM
     Indication: PRODUCT USED FOR UNKNOWN INDICATION
     Dosage: 40 MG, QD
     Route: 048
  8. SANDOSTATIN LAR DEPOT [Suspect]
     Active Substance: OCTREOTIDE ACETATE
     Indication: PITUITARY TUMOUR BENIGN
     Dosage: UNK UNK, QD
     Route: 065
     Dates: start: 20150212
  9. JANUMET [Concomitant]
     Active Substance: METFORMIN HYDROCHLORIDE\SITAGLIPTIN PHOSPHATE
     Indication: PRODUCT USED FOR UNKNOWN INDICATION
     Dosage: (50  TO1000) BID
     Route: 048
  10. COVERSYL [Concomitant]
     Active Substance: PERINDOPRIL
     Indication: PRODUCT USED FOR UNKNOWN INDICATION
     Dosage: 8 MG, QD
     Route: 048

REACTIONS (22)
  - Blood growth hormone increased [Unknown]
  - Haematocrit decreased [Unknown]
  - Snoring [Unknown]
  - Neoplasm progression [Unknown]
  - Oedema peripheral [Unknown]
  - Haemoglobin decreased [Unknown]
  - Tri-iodothyronine free decreased [Unknown]
  - Astigmatism [Unknown]
  - Glycosylated haemoglobin increased [Unknown]
  - Thyroxine decreased [Unknown]
  - Urine albumin/creatinine ratio [Unknown]
  - Refraction disorder [Unknown]
  - Hyperhidrosis [Unknown]
  - Hypermetropia [Unknown]
  - Blood glucose increased [Unknown]
  - Blood gonadotrophin decreased [Unknown]
  - Vitreous detachment [Unknown]
  - Type 2 diabetes mellitus [Unknown]
  - Red blood cell count decreased [Unknown]
  - Hyperkeratosis [Unknown]
  - Presbyopia [Unknown]
  - Blood testosterone decreased [Unknown]

NARRATIVE: CASE EVENT DATE: 20150212
